FAERS Safety Report 8091619-8 (Version None)
Quarter: 2012Q1

REPORT INFORMATION
  Report Type: 
  Country: None (occurrence: None)
  Receive Date: 20120131
  Receipt Date: 20120125
  Transmission Date: 20120608
  Serious: No
  Sender: FDA-Public Use
  Company Number: US-PFIZER INC-2012021176

PATIENT
  Sex: Female

DRUGS (2)
  1. LATANOPROST [Suspect]
     Indication: GLAUCOMA
     Dosage: 1 GTT IN EACH EYE DAILY
     Route: 047
     Dates: start: 20110601
  2. LATANOPROST [Suspect]
     Dosage: UNK

REACTIONS (2)
  - EYE IRRITATION [None]
  - LACRIMATION INCREASED [None]
